FAERS Safety Report 13773862 (Version 2)
Quarter: 2017Q4

REPORT INFORMATION
  Report Type: Spontaneous
  Country: US (occurrence: US)
  Receive Date: 20170720
  Receipt Date: 20171020
  Transmission Date: 20180320
  Serious: Yes (Other)
  Sender: FDA-Public Use
  Company Number: US-BAYER-2017-138721

PATIENT
  Sex: Female
  Weight: 58.5 kg

DRUGS (2)
  1. VENTOLIN HFA [Suspect]
     Active Substance: ALBUTEROL SULFATE
  2. SKYLA [Suspect]
     Active Substance: LEVONORGESTREL
     Indication: CONTRACEPTION
     Dosage: 14 MCG/24HR, CONT
     Route: 015
     Dates: start: 2016, end: 20170623

REACTIONS (5)
  - Device dislocation [None]
  - Genital haemorrhage [None]
  - Menstruation irregular [None]
  - Abdominal pain lower [None]
  - Pelvic pain [None]
